FAERS Safety Report 25003497 (Version 2)
Quarter: 2025Q1

REPORT INFORMATION
  Report Type: Report from Study
  Country: CN (occurrence: CN)
  Receive Date: 20250224
  Receipt Date: 20250312
  Transmission Date: 20250408
  Serious: Yes (Other)
  Sender: GILEAD
  Company Number: CN-GILEAD-2025-0703651

PATIENT
  Age: 43 Year
  Sex: Female

DRUGS (3)
  1. SACITUZUMAB GOVITECAN-HZIY [Suspect]
     Active Substance: SACITUZUMAB GOVITECAN-HZIY
     Indication: Invasive breast carcinoma
     Route: 041
     Dates: start: 20250122
  2. SACITUZUMAB GOVITECAN-HZIY [Suspect]
     Active Substance: SACITUZUMAB GOVITECAN-HZIY
     Route: 041
     Dates: start: 20250221
  3. RIVOCERANIB [Concomitant]
     Active Substance: RIVOCERANIB
     Dosage: 0.25 G, QD, Q3WK
     Route: 048
     Dates: start: 20250122

REACTIONS (4)
  - Myelosuppression [Recovering/Resolving]
  - Hypothyroidism [Recovering/Resolving]
  - Abdominal pain [Recovering/Resolving]
  - Hepatic function abnormal [Recovering/Resolving]
